FAERS Safety Report 8708839 (Version 4)
Quarter: 2012Q4

REPORT INFORMATION
  Report Type: Report from Study
  Country: FR (occurrence: FR)
  Receive Date: 20120806
  Receipt Date: 20121004
  Transmission Date: 20130627
  Serious: Yes (Death, Life-Threatening, Hospitalization)
  Sender: FDA-Public Use
  Company Number: FR-ROCHE-1086663

PATIENT
  Age: 57 Year
  Sex: Male
  Weight: 89 kg

DRUGS (8)
  1. AVASTIN [Suspect]
     Indication: LUNG NEOPLASM MALIGNANT
     Dosage: Last dose prior to SAE was on 04/Oct/2010
     Route: 042
     Dates: start: 20100914, end: 20110104
  2. CISPLATIN [Suspect]
     Indication: LUNG NEOPLASM MALIGNANT
     Dosage: Last dose prior to SAE was on 04/Oct/2010
     Route: 042
     Dates: start: 20100914
  3. PEMETREXED DISODIUM [Suspect]
     Indication: LUNG NEOPLASM MALIGNANT
     Dosage: Last dose prior to SAE was on 04/Oct/2010
     Route: 042
     Dates: start: 20100914
  4. TENORMINE [Concomitant]
     Indication: HYPERTENSION
     Route: 048
  5. DIGOXINE [Concomitant]
     Indication: ATRIAL FIBRILLATION
     Route: 048
  6. IMOVANE [Concomitant]
     Indication: SLEEP DISORDER
     Route: 048
  7. OXYCONTIN [Concomitant]
     Indication: PAIN
     Route: 048
  8. INEXIUM [Concomitant]
     Route: 048

REACTIONS (5)
  - Disease progression [Fatal]
  - Dehydration [Recovered/Resolved]
  - Decreased appetite [Recovered/Resolved]
  - Nausea [Recovered/Resolved]
  - Weight decreased [Recovered/Resolved]
